FAERS Safety Report 21624198 (Version 2)
Quarter: 2022Q4

REPORT INFORMATION
  Report Type: Spontaneous
  Country: BR (occurrence: BR)
  Receive Date: 20221121
  Receipt Date: 20221201
  Transmission Date: 20230113
  Serious: Yes (Disabling, Other)
  Sender: FDA-Public Use
  Company Number: BR-009507513-1707BRA010938

PATIENT
  Age: 71 Year
  Sex: Male
  Weight: 130 kg

DRUGS (11)
  1. JANUVIA [Suspect]
     Active Substance: SITAGLIPTIN PHOSPHATE
     Indication: Diabetes mellitus
     Dosage: 1 TABLET (25 MG) PER DAY
     Route: 048
     Dates: start: 2012, end: 2014
  2. METOPROLOL TARTRATE [Concomitant]
     Active Substance: METOPROLOL TARTRATE
     Indication: Hypertension
     Dosage: 1 TABLET (100 MG) PER DAY
     Route: 048
  3. METOPROLOL TARTRATE [Concomitant]
     Active Substance: METOPROLOL TARTRATE
     Indication: Cardiovascular event prophylaxis
  4. XARELTO [Concomitant]
     Active Substance: RIVAROXABAN
     Indication: Anticoagulant therapy
     Dosage: 1 TABLET (20 MG) PER DAY
     Route: 048
     Dates: start: 2008
  5. EXFORGE HCT [Concomitant]
     Active Substance: AMLODIPINE BESYLATE\HYDROCHLOROTHIAZIDE\VALSARTAN
     Indication: Cardiac disorder
     Dosage: UNK, QD
  6. EXFORGE HCT [Concomitant]
     Active Substance: AMLODIPINE BESYLATE\HYDROCHLOROTHIAZIDE\VALSARTAN
     Indication: Blood pressure measurement
     Dosage: UNK, QD
  7. ATORVASTATIN [Concomitant]
     Active Substance: ATORVASTATIN
     Indication: Peripheral swelling
     Dosage: UNK, QD
  8. ATORVASTATIN [Concomitant]
     Active Substance: ATORVASTATIN
     Dosage: UNK, QD
  9. FUROSEMIDE [Concomitant]
     Active Substance: FUROSEMIDE
     Indication: Peripheral swelling
     Dosage: UNK, QD
  10. FUROSEMIDE [Concomitant]
     Active Substance: FUROSEMIDE
     Dosage: UNK, QD
  11. GLICLAZIDE [Concomitant]
     Active Substance: GLICLAZIDE
     Indication: Blood glucose increased
     Dosage: TWICE A DAY AFTER LUNCH

REACTIONS (4)
  - Gait inability [Unknown]
  - Chronic kidney disease [Unknown]
  - Pain in extremity [Unknown]
  - Drug ineffective [Recovered/Resolved]

NARRATIVE: CASE EVENT DATE: 20120101
